FAERS Safety Report 9655599 (Version 1)
Quarter: 2013Q4

REPORT INFORMATION
  Report Type: Spontaneous
  Country: US (occurrence: US)
  Receive Date: 20131030
  Receipt Date: 20131030
  Transmission Date: 20140711
  Serious: No
  Sender: FDA-Public Use
  Company Number: US-B.I. PHARMACEUTICALS,INC./RIDGEFIELD-2013-BI-33536BP

PATIENT
  Age: 86 Year
  Sex: Male
  Weight: 84 kg

DRUGS (7)
  1. SPIRIVA [Suspect]
     Indication: ASTHMA
     Dosage: 18 MCG
     Route: 055
     Dates: start: 201308
  2. OMEPRAZOLE [Concomitant]
     Indication: ABDOMINAL PAIN UPPER
     Dosage: 20 MG
     Route: 048
  3. TAMSULOSIN [Concomitant]
     Indication: POLLAKIURIA
     Route: 048
  4. DOXAZOSIN [Concomitant]
     Indication: POLLAKIURIA
     Route: 048
  5. VERAPAMIL [Concomitant]
     Indication: HYPERTENSION
     Dosage: 240 MG
     Route: 048
  6. SYMBICORT [Concomitant]
     Indication: ASTHMA
     Route: 055
  7. THEODUR [Concomitant]
     Indication: ASTHMA
     Route: 048

REACTIONS (3)
  - Constipation [Not Recovered/Not Resolved]
  - Dizziness [Not Recovered/Not Resolved]
  - Off label use [Not Recovered/Not Resolved]
